FAERS Safety Report 7906555-4 (Version None)
Quarter: 2011Q4

REPORT INFORMATION
  Report Type: 
  Country: None (occurrence: None)
  Receive Date: 20111110
  Receipt Date: 20101215
  Transmission Date: 20120403
  Serious: No
  Sender: FDA-Public Use
  Company Number: US-MUTUAL PHARMACEUTICAL COMPANY, INC.-2010P1003382

PATIENT
  Sex: Female

DRUGS (3)
  1. PHENTERMINE HCL [Suspect]
     Indication: WEIGHT DECREASED
     Dates: start: 20090101, end: 20090101
  2. PHENTERMINE HCL [Suspect]
     Dates: start: 20101214
  3. UNSPECIFIED ORAL BIRTH CONTROL [Concomitant]

REACTIONS (1)
  - DRUG INEFFECTIVE [None]
